FAERS Safety Report 7740579-5 (Version None)
Quarter: 2011Q3

REPORT INFORMATION
  Report Type: 
  Country: None (occurrence: None)
  Receive Date: 20110909
  Receipt Date: 20110906
  Transmission Date: 20111222
  Serious: Yes (Hospitalization, Other)
  Sender: FDA-Public Use
  Company Number: AU-PFIZER INC-2011204573

PATIENT
  Age: 83 Year
  Sex: Female

DRUGS (3)
  1. MORPHINE SULFATE [Suspect]
     Indication: PREMEDICATION
     Dosage: 2.5 MG, SINGLE
  2. PROPOFOL [Suspect]
     Dosage: 50 MG, SINGLE
  3. FENTANYL [Suspect]
     Indication: SEDATION
     Dosage: 50 UG, SINGLE

REACTIONS (1)
  - ANAESTHETIC COMPLICATION PULMONARY [None]
